FAERS Safety Report 5684988-7 (Version None)
Quarter: 2008Q1

REPORT INFORMATION
  Report Type: 
  Country: None (occurrence: None)
  Receive Date: 20080328
  Receipt Date: 20080318
  Transmission Date: 20080703
  Serious: Yes (Death, Life-Threatening, Hospitalization)
  Sender: FDA-Public Use
  Company Number: ES-ABBOTT-08P-144-0433570-02

PATIENT
  Sex: Female

DRUGS (13)
  1. HUMIRA [Suspect]
     Indication: RHEUMATOID ARTHRITIS
     Route: 058
     Dates: start: 20041125, end: 20071218
  2. COMMERCIAL HUMIRA [Concomitant]
     Indication: RHEUMATOID ARTHRITIS
     Dates: start: 20040402
  3. AMIODARONE HCL [Concomitant]
     Indication: ATRIAL FIBRILLATION
     Dates: end: 20071218
  4. HEPARIN SODIUM [Concomitant]
     Indication: DRUG USE FOR UNKNOWN INDICATION
     Dates: end: 20071218
  5. CALCIUM [Concomitant]
     Indication: OSTEOPOROSIS
     Dates: end: 20071218
  6. IBANDRONIC ACID [Concomitant]
     Indication: OSTEOPOROSIS
     Dates: end: 20071218
  7. LEFLUNOMIDE [Concomitant]
     Indication: RHEUMATOID ARTHRITIS
     Dates: end: 20071218
  8. ZAMENT [Concomitant]
     Indication: RHEUMATOID ARTHRITIS
     Dates: end: 20071218
  9. ACETAMINOPHEN [Concomitant]
     Indication: RHEUMATOID ARTHRITIS
     Dates: end: 20071218
  10. ACETAZOLAMIDE [Concomitant]
     Indication: HYPERTENSION
     Dates: end: 20071218
  11. OMEPRAZOLE [Concomitant]
     Indication: PROPHYLAXIS AGAINST GASTROINTESTINAL ULCER
     Dates: end: 20071218
  12. SPIRONOLACTONE [Concomitant]
     Indication: HYPERTENSION
     Dates: end: 20071218
  13. LYMELET PROLIB [Concomitant]
     Indication: DEPRESSION
     Dates: end: 20071218

REACTIONS (4)
  - ATRIAL FIBRILLATION [None]
  - BRONCHOPNEUMONIA [None]
  - CARDIAC FAILURE [None]
  - CEREBRAL INFARCTION [None]
